FAERS Safety Report 5030211-6 (Version None)
Quarter: 2006Q2

REPORT INFORMATION
  Report Type: 
  Country: None (occurrence: None)
  Receive Date: 20060614
  Receipt Date: 20060602
  Transmission Date: 20061013
  Serious: Yes (Hospitalization)
  Sender: FDA-Public Use
  Company Number: SGB1-2005-00493

PATIENT
  Age: 40 Year
  Sex: Female

DRUGS (16)
  1. LANTHANUM CARBONATO(IANTHANUM CARBONATE) TABLET CHEWABLE [Suspect]
     Indication: HYPERPHOSPHATAEMIA
     Dosage: SEE IMAGE
     Route: 048
     Dates: start: 20050531, end: 20050605
  2. LANTHANUM CARBONATO(IANTHANUM CARBONATE) TABLET CHEWABLE [Suspect]
     Indication: HYPERPHOSPHATAEMIA
     Dosage: SEE IMAGE
     Route: 048
     Dates: start: 20050606, end: 20050717
  3. LANTHANUM CARBONATO(IANTHANUM CARBONATE) TABLET CHEWABLE [Suspect]
     Indication: HYPERPHOSPHATAEMIA
     Dosage: SEE IMAGE
     Route: 048
     Dates: start: 20050718, end: 20050731
  4. LANTHANUM CARBONATO(IANTHANUM CARBONATE) TABLET CHEWABLE [Suspect]
     Indication: HYPERPHOSPHATAEMIA
     Dosage: SEE IMAGE
     Route: 048
     Dates: start: 20050801, end: 20050904
  5. LANTHANUM CARBONATO(IANTHANUM CARBONATE) TABLET CHEWABLE [Suspect]
     Indication: HYPERPHOSPHATAEMIA
     Dosage: SEE IMAGE
     Route: 048
     Dates: start: 20050905, end: 20051026
  6. LEVOTHYROXINE SODIUM [Concomitant]
  7. NEUER (CETRAXATE HYDROCHLORIDE) [Concomitant]
  8. CLONAZEPAM [Concomitant]
  9. NORVASC [Concomitant]
  10. BLOPRESS (CANDESARTAN CILEXETIL) [Concomitant]
  11. ALLOPURINOL [Concomitant]
  12. BETHAMETHASONE DIPROPIONATE (BETAMTHASONE DIPROPIONATE) [Concomitant]
  13. EPOGEN [Concomitant]
  14. OXAROL (MAXACALCITOL) [Concomitant]
  15. KARY UNI (PIRENOXIENE) [Concomitant]
  16. YAKUBAN (FLURBIPROFEN) [Concomitant]

REACTIONS (9)
  - ANGINA UNSTABLE [None]
  - ARTERIOSCLEROSIS CORONARY ARTERY [None]
  - BACK PAIN [None]
  - CORONARY ARTERY OCCLUSION [None]
  - HAEMODIALYSIS [None]
  - MYOCARDIAL ISCHAEMIA [None]
  - PLATELET COUNT DECREASED [None]
  - POST PROCEDURAL COMPLICATION [None]
  - POSTOPERATIVE FEVER [None]
